FAERS Safety Report 8725779 (Version 4)
Quarter: 2013Q1

REPORT INFORMATION
  Report Type: Spontaneous
  Country: US (occurrence: US)
  Receive Date: 20120816
  Receipt Date: 20130325
  Transmission Date: 20140127
  Serious: Yes (Other)
  Sender: FDA-Public Use
  Company Number: US-BIOGENIDEC-2012BI030114

PATIENT
  Age: 29 Year
  Sex: Female

DRUGS (5)
  1. AVONEX [Suspect]
     Indication: MULTIPLE SCLEROSIS
     Route: 030
     Dates: start: 20110401, end: 20120123
  2. ORAL CONTRACEPTIVES [Concomitant]
  3. VITAMIN B12 [Concomitant]
     Indication: VITAMIN B12 DEFICIENCY
  4. VITAMIN D [Concomitant]
     Indication: VITAMIN D DEFICIENCY
  5. PRENATAL VITAMINS [Concomitant]

REACTIONS (1)
  - Placenta praevia [Recovered/Resolved]
